FAERS Safety Report 16939356 (Version 2)
Quarter: 2019Q4

REPORT INFORMATION
  Report Type: Report from Study
  Country: US (occurrence: US)
  Receive Date: 20191021
  Receipt Date: 20191227
  Transmission Date: 20200122
  Serious: Yes (Other)
  Sender: FDA-Public Use
  Company Number: US-ALEXION PHARMACEUTICALS INC.-A201915733

PATIENT
  Sex: Female

DRUGS (1)
  1. SOLIRIS [Suspect]
     Active Substance: ECULIZUMAB
     Indication: ATYPICAL HAEMOLYTIC URAEMIC SYNDROME
     Dosage: 1200 MG, Q2W
     Route: 042
     Dates: start: 20151111

REACTIONS (5)
  - Respiratory tract infection [Recovered/Resolved]
  - Somnolence [Recovering/Resolving]
  - Nasopharyngitis [Unknown]
  - Productive cough [Unknown]
  - Cough [Unknown]

NARRATIVE: CASE EVENT DATE: 2019
